FAERS Safety Report 10503692 (Version 1)
Quarter: 2014Q4

REPORT INFORMATION
  Report Type: Spontaneous
  Country: US (occurrence: None)
  Receive Date: 20141007
  Receipt Date: 20141007
  Transmission Date: 20150528
  Serious: Yes (Hospitalization)
  Sender: FDA-Public Use
  Company Number: None

PATIENT
  Age: 55 Year
  Sex: Male
  Weight: 108.8 kg

DRUGS (2)
  1. COLCHICINE. [Suspect]
     Active Substance: COLCHICINE
     Indication: GOUT
     Dosage: 0.6 MG, EVERY DAY, PO
     Dates: start: 20120202, end: 20120615
  2. SIMVASTATIN. [Suspect]
     Active Substance: SIMVASTATIN
     Indication: HYPERLIPIDAEMIA
     Route: 048
     Dates: start: 20101209, end: 20120615

REACTIONS (4)
  - Acute kidney injury [None]
  - Rhabdomyolysis [None]
  - Drug interaction [None]
  - Drug level increased [None]

NARRATIVE: CASE EVENT DATE: 20120616
